FAERS Safety Report 10409380 (Version 3)
Quarter: 2014Q4

REPORT INFORMATION
  Report Type: Report from Study
  Country: US (occurrence: US)
  Receive Date: 20140826
  Receipt Date: 20141119
  Transmission Date: 20150528
  Serious: Yes (Congenital Anomaly, Other)
  Sender: FDA-Public Use
  Company Number: US-MYLAN-2014S1010246

PATIENT
  Age: 21 Year
  Sex: Female
  Weight: 63.05 kg

DRUGS (3)
  1. TRINESSA [Concomitant]
     Active Substance: ETHINYL ESTRADIOL\NORGESTIMATE
     Dosage: UNK
     Dates: start: 20140216, end: 20140422
  2. AMNESTEEM [Suspect]
     Active Substance: ISOTRETINOIN
     Dosage: 40 MG,QD
     Dates: start: 20140331, end: 20140422
  3. IRON [Concomitant]
     Active Substance: IRON
     Dosage: UNK
     Dates: start: 20140102, end: 20140422

REACTIONS (8)
  - Exposure during pregnancy [Recovered/Resolved]
  - Constipation [Not Recovered/Not Resolved]
  - Abortion induced [Recovered/Resolved]
  - Ovarian cyst [Not Recovered/Not Resolved]
  - Foetal cardiac disorder [Not Recovered/Not Resolved]
  - Cervix neoplasm [Not Recovered/Not Resolved]
  - Streptococcus test positive [Recovered/Resolved]
  - Dizziness [Not Recovered/Not Resolved]

NARRATIVE: CASE EVENT DATE: 2014
